FAERS Safety Report 16417551 (Version 2)
Quarter: 2020Q3

REPORT INFORMATION
  Report Type: Spontaneous
  Country: US (occurrence: US)
  Receive Date: 20190611
  Receipt Date: 20200728
  Transmission Date: 20201102
  Serious: Yes (Other)
  Sender: FDA-Public Use
  Company Number: US-TEVA-2019-US-1053815

PATIENT
  Sex: Female

DRUGS (6)
  1. LEVOTHYROXINE TEVA [Concomitant]
     Active Substance: LEVOTHYROXINE
  2. ATENOLOL TEVA [Concomitant]
     Active Substance: ATENOLOL
  3. CLONAZEPAM ACTAVIS [Suspect]
     Active Substance: CLONAZEPAM
     Indication: SYSTEMIC LUPUS ERYTHEMATOSUS
  4. WARFARIN TEVA [Concomitant]
     Active Substance: WARFARIN SODIUM
  5. STATIN TEVA [Concomitant]
  6. CLONAZEPAM ACTAVIS [Suspect]
     Active Substance: CLONAZEPAM
     Indication: PETIT MAL EPILEPSY
     Route: 065
     Dates: start: 20190515

REACTIONS (4)
  - Seizure [Unknown]
  - Product substitution issue [Unknown]
  - Tachycardia [Unknown]
  - Somnolence [Unknown]

NARRATIVE: CASE EVENT DATE: 20190516
